FAERS Safety Report 5823193-8 (Version None)
Quarter: 2008Q3

REPORT INFORMATION
  Report Type: 
  Country: None (occurrence: None)
  Receive Date: 20080725
  Receipt Date: 20080719
  Transmission Date: 20090109
  Serious: Yes (Other)
  Sender: FDA-Public Use
  Company Number: PHHY2008BR14797

PATIENT
  Sex: Female
  Weight: 70 kg

DRUGS (3)
  1. PREXIGE [Suspect]
     Indication: MUSCULOSKELETAL PAIN
     Dosage: 400 MG, BID
     Route: 048
     Dates: start: 20071101, end: 20080718
  2. PREXIGE [Suspect]
     Indication: OSTEOPOROSIS
  3. VOLTAREN [Suspect]

REACTIONS (11)
  - APTYALISM [None]
  - ARTHRALGIA [None]
  - DRY EYE [None]
  - DRY MOUTH [None]
  - GAIT DISTURBANCE [None]
  - KNEE OPERATION [None]
  - LOWER LIMB DEFORMITY [None]
  - MUSCLE SPASMS [None]
  - PAIN IN EXTREMITY [None]
  - RENAL PAIN [None]
  - TONGUE DRY [None]
